FAERS Safety Report 19428314 (Version 1)
Quarter: 2021Q2

REPORT INFORMATION
  Report Type: Spontaneous
  Country: US (occurrence: US)
  Receive Date: 20210617
  Receipt Date: 20210617
  Transmission Date: 20210717
  Serious: Yes (Other)
  Sender: FDA-Public Use
  Company Number: NVSC2021US131677

PATIENT
  Sex: Female

DRUGS (1)
  1. VOTRIENT [Suspect]
     Active Substance: PAZOPANIB HYDROCHLORIDE
     Indication: SOFT TISSUE SARCOMA
     Dosage: (3 TABLETS DAILY FROM MONDAY TO THURSDAY, 2 TABLETS DAILY FROM FRIDAY TO SUNDAY)
     Route: 048
     Dates: start: 202001, end: 202105

REACTIONS (3)
  - Inappropriate schedule of product administration [Unknown]
  - Soft tissue sarcoma [Unknown]
  - Malignant neoplasm progression [Unknown]
